FAERS Safety Report 10042435 (Version 1)
Quarter: 2014Q1

REPORT INFORMATION
  Report Type: Spontaneous
  Country: US (occurrence: None)
  Receive Date: 20140325
  Receipt Date: 20140325
  Transmission Date: 20141002
  Serious: Yes (Death)
  Sender: FDA-Public Use
  Company Number: AUR-APL-2014-02853

PATIENT
  Age: 38 Year
  Sex: Female

DRUGS (1)
  1. HYDROCORDONE+PARACETAMOL (PARACETAMOL, HYDROCODONE) [Suspect]
     Indication: PRODUCT USED FOR UNKNOWN INDICATION
     Route: 048

REACTIONS (6)
  - Drug abuse [None]
  - Exposure via ingestion [None]
  - Toxicity to various agents [None]
  - Wrong technique in drug usage process [None]
  - Respiratory arrest [None]
  - Cardiac arrest [None]
